FAERS Safety Report 6328510-0 (Version None)
Quarter: 2009Q3

REPORT INFORMATION
  Report Type: 
  Country: None (occurrence: None)
  Receive Date: 20090826
  Receipt Date: 20090818
  Transmission Date: 20100115
  Serious: Yes (Hospitalization)
  Sender: FDA-Public Use
  Company Number: US-BIOGENIDEC-2009BI014506

PATIENT
  Age: 54 Year
  Sex: Male
  Weight: 77 kg

DRUGS (2)
  1. TYSABRI [Suspect]
     Indication: MULTIPLE SCLEROSIS
     Route: 042
     Dates: start: 20080401
  2. PROVIGIL [Concomitant]
     Indication: FATIGUE
     Dates: start: 20080101

REACTIONS (3)
  - ECHOCARDIOGRAM ABNORMAL [None]
  - FATIGUE [None]
  - MYOCARDIAL INFARCTION [None]
